FAERS Safety Report 7741538-9 (Version None)
Quarter: 2011Q3

REPORT INFORMATION
  Report Type: 
  Country: None (occurrence: None)
  Receive Date: 20110909
  Receipt Date: 20110902
  Transmission Date: 20111222
  Serious: Yes (Other)
  Sender: FDA-Public Use
  Company Number: US-AMGEN-USASP2011043343

PATIENT
  Sex: Female
  Weight: 162 kg

DRUGS (3)
  1. PROCRIT [Suspect]
     Indication: MYELODYSPLASTIC SYNDROME
     Dosage: 40000 IU, QWK
     Dates: start: 20080101
  2. SYNTHROID [Concomitant]
     Indication: THYROID DISORDER
     Dosage: UNK
     Route: 048
  3. ZOLOFT [Concomitant]
     Indication: DEPRESSION
     Dosage: 50 MG, QD
     Route: 048

REACTIONS (9)
  - COLD SWEAT [None]
  - ARTHRALGIA [None]
  - ASTHENIA [None]
  - HAEMOGLOBIN DECREASED [None]
  - DRUG INEFFECTIVE [None]
  - PAIN [None]
  - INJECTION SITE PAIN [None]
  - BONE PAIN [None]
  - HYPOTENSION [None]
